FAERS Safety Report 7883733-4 (Version None)
Quarter: 2011Q4

REPORT INFORMATION
  Report Type: 
  Country: None (occurrence: None)
  Receive Date: 20111102
  Receipt Date: 20111027
  Transmission Date: 20120403
  Serious: Yes (Other)
  Sender: FDA-Public Use
  Company Number: US-SANOFI-AVENTIS-2011SA059924

PATIENT
  Age: 72 Year
  Sex: Male
  Weight: 82 kg

DRUGS (22)
  1. BETHANECHOL [Concomitant]
  2. TYLENOL-500 [Concomitant]
  3. MULTAQ [Suspect]
     Indication: ATRIAL FIBRILLATION
     Route: 048
     Dates: start: 20101212
  4. MULTAQ [Suspect]
     Route: 048
     Dates: start: 20101212
  5. CARAFATE [Concomitant]
  6. NITRODERM [Concomitant]
  7. ATORVASTATIN CALCIUM [Concomitant]
  8. MISOPROSTOL [Concomitant]
  9. CHOLESTYRAMINE [Concomitant]
  10. PLAVIX [Concomitant]
  11. COUMADIN [Concomitant]
     Dates: start: 20101130
  12. LUTEIN [Concomitant]
  13. IMDUR [Concomitant]
  14. XOPENEX [Concomitant]
  15. FISH OIL [Concomitant]
  16. HYDROCHLOROTHIAZIDE [Concomitant]
  17. ASPIRIN [Concomitant]
     Dates: start: 20090713
  18. CARDIZEM LA [Concomitant]
  19. ESOMEPRAZOLE MAGNESIUM [Concomitant]
  20. MULTAQ [Suspect]
     Route: 048
     Dates: start: 20101212
  21. MINITRAN [Concomitant]
  22. MIRALAX [Concomitant]

REACTIONS (3)
  - NAUSEA [None]
  - ATRIAL FIBRILLATION [None]
  - DIARRHOEA [None]
